FAERS Safety Report 21722570 (Version 1)
Quarter: 2022Q4

REPORT INFORMATION
  Report Type: Spontaneous
  Country: GB (occurrence: GB)
  Receive Date: 20221213
  Receipt Date: 20221213
  Transmission Date: 20230113
  Serious: Yes (Other)
  Sender: FDA-Public Use
  Company Number: GB-SAMSUNG BIOEPIS-SB-2022-31081

PATIENT
  Age: 37 Year
  Sex: Female

DRUGS (3)
  1. BEVACIZUMAB [Suspect]
     Active Substance: BEVACIZUMAB
     Indication: Cervix carcinoma stage III
     Dosage: UNKNOWN
     Route: 065
  2. CARBOPLATIN [Concomitant]
     Active Substance: CARBOPLATIN
     Indication: Cervix carcinoma stage III
     Dosage: UNKNOWN
     Route: 065
  3. PACLITAXEL [Concomitant]
     Active Substance: PACLITAXEL
     Indication: Cervix carcinoma stage III
     Dosage: UNKNOWN
     Route: 065

REACTIONS (4)
  - Lymphadenopathy mediastinal [Unknown]
  - Cervix carcinoma stage III [Unknown]
  - Radiation neuropathy [Unknown]
  - Disease recurrence [Unknown]
